FAERS Safety Report 9614183 (Version 2)
Quarter: 2013Q4

REPORT INFORMATION
  Report Type: Spontaneous
  Country: US (occurrence: US)
  Receive Date: 20131011
  Receipt Date: 20131101
  Transmission Date: 20140711
  Serious: Yes (Death, Hospitalization)
  Sender: FDA-Public Use
  Company Number: US-BIOGENIDEC-2013BI095820

PATIENT
  Age: 64 Year
  Sex: Female

DRUGS (11)
  1. TECFIDERA [Suspect]
     Indication: MULTIPLE SCLEROSIS
     Route: 048
     Dates: start: 20130617, end: 20130624
  2. TECFIDERA [Suspect]
     Indication: MULTIPLE SCLEROSIS
     Route: 048
     Dates: start: 20130624
  3. AMPYRA [Concomitant]
  4. ASPIRIN [Concomitant]
  5. CELEXA [Concomitant]
  6. INSULIN [Concomitant]
  7. METOPROLOL [Concomitant]
  8. NITROGLYCERINE [Concomitant]
  9. PLAVIX [Concomitant]
  10. PRAVASTATIN [Concomitant]
  11. RENEXA [Concomitant]

REACTIONS (2)
  - Death [Fatal]
  - Asthenia [Unknown]
